FAERS Safety Report 5449599-7 (Version None)
Quarter: 2007Q3

REPORT INFORMATION
  Report Type: 
  Country: None (occurrence: None)
  Receive Date: 20070910
  Receipt Date: 20070830
  Transmission Date: 20080115
  Serious: Yes (Death)
  Sender: FDA-Public Use
  Company Number: THQ2007A00692

PATIENT
  Sex: Male

DRUGS (3)
  1. PIOGLITAZONE HCL [Suspect]
     Indication: DIABETES MELLITUS
     Dosage: 45 MG (45 MG, 1 IN 1 D) PER ORAL
     Route: 048
     Dates: start: 20020101
  2. REPAGLINIDE [Concomitant]
  3. METFORMIN HCL [Concomitant]

REACTIONS (1)
  - NON-HODGKIN'S LYMPHOMA RECURRENT [None]
